FAERS Safety Report 7340123-0 (Version None)
Quarter: 2011Q1

REPORT INFORMATION
  Report Type: 
  Country: None (occurrence: None)
  Receive Date: 20110228
  Receipt Date: 20110217
  Transmission Date: 20110831
  Serious: Yes (Death, Hospitalization)
  Sender: FDA-Public Use
  Company Number: 2009001814

PATIENT
  Age: 47 Year
  Sex: Male

DRUGS (23)
  1. FUROSEMIDE (FUROSEMIDE) [Concomitant]
  2. FLUCONAZOLE [Concomitant]
  3. PARACETAMOL (PARACETAMOL) [Concomitant]
  4. DOXEPIN HCL [Concomitant]
  5. AMLODIPINE [Concomitant]
  6. BISOPROLOL (BISOPROLOL) [Concomitant]
  7. FERROUS SULFATE TAB [Concomitant]
  8. RANITIDINE [Concomitant]
  9. LIDOCAINE [Concomitant]
  10. BACTRIM [Concomitant]
  11. METOCLOPRAMIDE [Concomitant]
  12. ETAMSYLATE [Concomitant]
  13. ENOXAPARIN SODIUM [Concomitant]
  14. METRONIDAZOLE [Concomitant]
  15. HYOSCINE HYDROCHLORIDE [Concomitant]
  16. FOLIC ACID [Concomitant]
  17. SPIRONOLACTONE [Concomitant]
  18. HALOPERIDOL [Concomitant]
  19. ESOMEPRAZOLE (ESOMEPRAZOLE) [Concomitant]
  20. ERLOTINIB HYDROCHLORIDE [Suspect]
     Indication: PANCREATIC CARCINOMA METASTATIC
     Dosage: (100 MG,QD),ORAL
     Route: 048
     Dates: start: 20090526, end: 20090609
  21. GEMCITABINE [Suspect]
     Indication: PANCREATIC CARCINOMA METASTATIC
     Dosage: (1970 MG,1XQW),INTRAVENOUS
     Route: 042
     Dates: start: 20090526, end: 20090609
  22. DROTAVERINE (DROTAVERINE) [Concomitant]
  23. FENTANYL [Concomitant]

REACTIONS (5)
  - INTESTINAL FISTULA [None]
  - BLOOD POTASSIUM DECREASED [None]
  - ASCITES [None]
  - HAEMOGLOBIN DECREASED [None]
  - ILEUS [None]
